FAERS Safety Report 6539980-7 (Version None)
Quarter: 2010Q1

REPORT INFORMATION
  Report Type: 
  Country: None (occurrence: None)
  Receive Date: 20100115
  Receipt Date: 20100107
  Transmission Date: 20100710
  Serious: Yes (Hospitalization)
  Sender: FDA-Public Use
  Company Number: PHEH2009US14903

PATIENT
  Sex: Male

DRUGS (2)
  1. EXJADE [Suspect]
     Dosage: 2500 MG, QD
     Route: 048
  2. EXJADE [Suspect]
     Dosage: FOUR DAILY

REACTIONS (3)
  - BLOOD CREATININE INCREASED [None]
  - SPLENECTOMY [None]
  - SURGERY [None]
